FAERS Safety Report 6199307-X (Version None)
Quarter: 2009Q2

REPORT INFORMATION
  Report Type: 
  Country: None (occurrence: None)
  Receive Date: 20090519
  Receipt Date: 20090519
  Transmission Date: 20091009
  Serious: Yes (Other)
  Sender: FDA-Public Use
  Company Number: None

PATIENT
  Age: 58 Year
  Sex: Female

DRUGS (1)
  1. COLESTID [Suspect]
     Indication: FLATULENCE
     Dosage: 4 TABLETS DAILY PO
     Route: 048
     Dates: start: 20090410, end: 20090412

REACTIONS (3)
  - IDIOSYNCRATIC DRUG REACTION [None]
  - IMMUNE SYSTEM DISORDER [None]
  - RASH [None]
